FAERS Safety Report 10004217 (Version 1)
Quarter: 2014Q1

REPORT INFORMATION
  Report Type: Spontaneous
  Country: DE (occurrence: DE)
  Receive Date: 20140312
  Receipt Date: 20140312
  Transmission Date: 20141002
  Serious: Yes (Other)
  Sender: FDA-Public Use
  Company Number: DE-AMGEN-DEUSP2014015452

PATIENT
  Age: 53 Year
  Sex: Female
  Weight: 81.5 kg

DRUGS (1)
  1. PROLIA [Suspect]
     Indication: OSTEOPOROSIS
     Dosage: 60 MG, Q6MO
     Route: 058
     Dates: start: 201204

REACTIONS (3)
  - Femoral neck fracture [Recovering/Resolving]
  - Osteoarthritis [Unknown]
  - Drug ineffective [Unknown]
